FAERS Safety Report 10241330 (Version 1)
Quarter: 2014Q2

REPORT INFORMATION
  Report Type: Spontaneous
  Country: US (occurrence: US)
  Receive Date: 20140617
  Receipt Date: 20140617
  Transmission Date: 20141212
  Serious: No
  Sender: FDA-Public Use
  Company Number: US-PFIZER INC-2014161886

PATIENT
  Age: 64 Year
  Sex: Male

DRUGS (2)
  1. SUTENT [Suspect]
     Indication: METASTATIC RENAL CELL CARCINOMA
     Dosage: 37.5 MG, (2 WEEKS ON AND 2 WEEKS OFF)
  2. LOSARTAN [Concomitant]

REACTIONS (2)
  - Insomnia [Unknown]
  - Blood pressure increased [Unknown]
